FAERS Safety Report 6176664-1 (Version None)
Quarter: 2009Q2

REPORT INFORMATION
  Report Type: 
  Country: None (occurrence: None)
  Receive Date: 20090501
  Receipt Date: 20081117
  Transmission Date: 20091009
  Serious: Yes (Hospitalization)
  Sender: FDA-Public Use
  Company Number: US-ALEXION-A200800361

PATIENT

DRUGS (12)
  1. SOLIRIS [Suspect]
     Indication: PAROXYSMAL NOCTURNAL HAEMOGLOBINURIA
     Dosage: UNK, UNK
     Route: 042
     Dates: start: 20070101
  2. NEORAL [Concomitant]
     Dosage: 25 MG, TID
  3. LOVENOX [Concomitant]
     Dosage: 60 MG, BID
     Route: 058
  4. PEPCID [Concomitant]
     Dosage: 20 MG, BID
  5. FOLIC ACID [Concomitant]
     Dosage: 1 MG, QD
  6. LOPRESSOR [Concomitant]
     Dosage: 50 MG, BID
  7. OXYCONTIN [Concomitant]
     Dosage: 80 MG, BID
  8. DILAUDID [Concomitant]
     Indication: PAROXYSMAL NOCTURNAL HAEMOGLOBINURIA
     Dosage: 2 MG, EVERY 4 - 6 AS NEEDED PRN
  9. VANCOMYCIN HCL [Concomitant]
  10. CEFEPIME [Concomitant]
  11. NEUPOGEN [Concomitant]
  12. SENOKOT                            /00142201/ [Concomitant]

REACTIONS (5)
  - NAUSEA [None]
  - PAINFUL RESPIRATION [None]
  - RHONCHI [None]
  - SPUTUM DISCOLOURED [None]
  - STAPHYLOCOCCAL SEPSIS [None]
